FAERS Safety Report 22086878 (Version 5)
Quarter: 2023Q2

REPORT INFORMATION
  Report Type: Report from Study
  Country: GB (occurrence: GB)
  Receive Date: 20230312
  Receipt Date: 20230623
  Transmission Date: 20230721
  Serious: Yes (Other)
  Sender: FDA-Public Use
  Company Number: GB-002147023-NVSC2023GB019237

PATIENT
  Age: 77 Year
  Sex: Female

DRUGS (3)
  1. KISQALI [Suspect]
     Active Substance: RIBOCICLIB
     Indication: Breast cancer
     Dosage: UNK
     Route: 065
     Dates: start: 202212
  2. KISQALI [Suspect]
     Active Substance: RIBOCICLIB
     Dosage: UNK
     Route: 065
  3. LOPERAMIDE [Suspect]
     Active Substance: LOPERAMIDE
     Indication: Product used for unknown indication
     Dosage: UNK, BID (ONCE IN MORNING AND ONCE IN EVENING)
     Route: 065

REACTIONS (24)
  - Urinary retention [Unknown]
  - Oropharyngeal discomfort [Unknown]
  - Haemorrhoids [Unknown]
  - Electrocardiogram abnormal [Unknown]
  - Toothache [Not Recovered/Not Resolved]
  - Cognitive disorder [Unknown]
  - Pleural calcification [Unknown]
  - Pain [Unknown]
  - Chronic obstructive pulmonary disease [Unknown]
  - Insomnia [Not Recovered/Not Resolved]
  - Muscle spasms [Unknown]
  - Eye irritation [Unknown]
  - Rhinorrhoea [Unknown]
  - Epistaxis [Recovered/Resolved]
  - Pain in jaw [Not Recovered/Not Resolved]
  - Wheezing [Unknown]
  - Epistaxis [Recovered/Resolved]
  - Diarrhoea [Not Recovered/Not Resolved]
  - Abdominal pain [Unknown]
  - Constipation [Not Recovered/Not Resolved]
  - Dyspnoea exertional [Unknown]
  - Fatigue [Not Recovered/Not Resolved]
  - Cough [Unknown]
  - Dry skin [Unknown]

NARRATIVE: CASE EVENT DATE: 20230122
